FAERS Safety Report 9057320 (Version 3)
Quarter: 2014Q1

REPORT INFORMATION
  Report Type: Report from Study
  Country: US (occurrence: US)
  Receive Date: 20130131
  Receipt Date: 20140312
  Transmission Date: 20141002
  Serious: Yes (Death, Hospitalization, Other)
  Sender: FDA-Public Use
  Company Number: US-ALEXION-A201300038

PATIENT
  Age: 54 Year
  Sex: Female

DRUGS (1)
  1. SOLIRIS [Suspect]
     Indication: PAROXYSMAL NOCTURNAL HAEMOGLOBINURIA
     Dosage: UNK
     Route: 042

REACTIONS (30)
  - Colitis ischaemic [Fatal]
  - Sepsis [Unknown]
  - Catheter removal [Unknown]
  - Weaning failure [Unknown]
  - Parenteral nutrition [Unknown]
  - Fluid replacement [Unknown]
  - Thoracotomy [Unknown]
  - Colostomy [Unknown]
  - Dehydration [Unknown]
  - Drug ineffective [Not Recovered/Not Resolved]
  - Feeling abnormal [Not Recovered/Not Resolved]
  - Clostridium difficile infection [Unknown]
  - Platelet count decreased [Unknown]
  - Hot flush [Not Recovered/Not Resolved]
  - Urinary tract infection [Not Recovered/Not Resolved]
  - Hyperhidrosis [Not Recovered/Not Resolved]
  - Chills [Not Recovered/Not Resolved]
  - Nausea [Not Recovered/Not Resolved]
  - Vomiting [Not Recovered/Not Resolved]
  - Anxiety [Unknown]
  - Hypotension [Unknown]
  - Pallor [Unknown]
  - Jaundice [Unknown]
  - Skin discolouration [Unknown]
  - Tachycardia [Unknown]
  - Secretion discharge [Unknown]
  - Urine output decreased [Unknown]
  - Pleural effusion [Unknown]
  - Aspiration pleural cavity [Unknown]
  - Skin oedema [Unknown]
